FAERS Safety Report 5051762-4 (Version None)
Quarter: 2006Q3

REPORT INFORMATION
  Report Type: 
  Country: None (occurrence: None)
  Receive Date: 20060713
  Receipt Date: 20060713
  Transmission Date: 20061208
  Serious: Yes (Hospitalization)
  Sender: FDA-Public Use
  Company Number: None

PATIENT
  Sex: Female
  Weight: 52.8 kg

DRUGS (9)
  1. IRINOTECAN HCL [Suspect]
     Indication: GLIOBLASTOMA MULTIFORME
     Dosage: 325MG/M2 DAY 1,8,22,29 IV
     Route: 042
     Dates: start: 20060614
  2. IRINOTECAN HCL [Suspect]
     Indication: GLIOBLASTOMA MULTIFORME
     Dosage: 325MG/M2 DAY 1,8,22,29 IV
     Route: 042
     Dates: start: 20060621
  3. IRINOTECAN HCL [Suspect]
     Indication: GLIOBLASTOMA MULTIFORME
     Dosage: 325MG/M2 DAY 1,8,22,29 IV
     Route: 042
     Dates: start: 20060707
  4. TEMODAR [Suspect]
     Indication: GLIOBLASTOMA MULTIFORME
     Dosage: 200MG/M2 DAYS 1-5 PO
     Route: 048
     Dates: start: 20050614, end: 20060618
  5. DILANTIN [Concomitant]
  6. NEXIUM [Concomitant]
  7. DEXAMETHASONE TAB [Concomitant]
  8. SENOKOT [Concomitant]
  9. ENDOCET [Concomitant]

REACTIONS (6)
  - CONDITION AGGRAVATED [None]
  - CULTURE WOUND POSITIVE [None]
  - ERYTHEMA [None]
  - MALIGNANT NEOPLASM PROGRESSION [None]
  - POST PROCEDURAL COMPLICATION [None]
  - SERRATIA INFECTION [None]
